FAERS Safety Report 6016412-9 (Version None)
Quarter: 2008Q4

REPORT INFORMATION
  Report Type: 
  Country: None (occurrence: None)
  Receive Date: 20081222
  Receipt Date: 20081216
  Transmission Date: 20090506
  Serious: Yes (Death, Hospitalization)
  Sender: FDA-Public Use
  Company Number: US-SANOFI-SYNTHELABO-F01200500691

PATIENT
  Sex: Female

DRUGS (4)
  1. OXYCONTIN [Concomitant]
  2. CAPECITABINE [Suspect]
     Route: 048
     Dates: start: 20050309, end: 20050412
  3. OXALIPLATIN [Suspect]
     Indication: PANCREATIC CARCINOMA
     Route: 042
     Dates: start: 20050330, end: 20050330
  4. URSODIOL [Concomitant]

REACTIONS (9)
  - ABDOMINAL PAIN [None]
  - DEATH [None]
  - DEHYDRATION [None]
  - DELIRIUM [None]
  - DIARRHOEA [None]
  - INTESTINAL PERFORATION [None]
  - NAUSEA [None]
  - PYREXIA [None]
  - VOMITING [None]
